FAERS Safety Report 8196775-9 (Version None)
Quarter: 2012Q1

REPORT INFORMATION
  Report Type: 
  Country: None (occurrence: None)
  Receive Date: 20120309
  Receipt Date: 20120305
  Transmission Date: 20120608
  Serious: Yes (Death)
  Sender: FDA-Public Use
  Company Number: US-PFIZER INC-2012013217

PATIENT
  Sex: Female

DRUGS (4)
  1. ZITHROMAX [Concomitant]
     Dosage: UNK
  2. AMOXICILLIN [Concomitant]
     Dosage: UNK
  3. LEVAQUIN [Concomitant]
     Dosage: UNK
  4. REVATIO [Suspect]
     Indication: PULMONARY ARTERIAL HYPERTENSION
     Dosage: 20 MG, 3X/DAY
     Route: 048
     Dates: start: 20120104

REACTIONS (3)
  - DEATH [None]
  - EAR DISCOMFORT [None]
  - NASAL CONGESTION [None]
